FAERS Safety Report 13635628 (Version 1)
Quarter: 2017Q2

REPORT INFORMATION
  Report Type: Spontaneous
  Country: US (occurrence: US)
  Receive Date: 20170531
  Receipt Date: 20170531
  Transmission Date: 20170830
  Serious: No
  Sender: FDA-Public Use
  Company Number: US-ASTELLAS-1732332

PATIENT
  Sex: Female

DRUGS (14)
  1. BETAXOLOL. [Concomitant]
     Active Substance: BETAXOLOL
  2. TARCEVA [Suspect]
     Active Substance: ERLOTINIB HYDROCHLORIDE
     Indication: LUNG NEOPLASM MALIGNANT
     Route: 048
     Dates: start: 20100329
  3. WARFARIN [Concomitant]
     Active Substance: WARFARIN
  4. BACLOFEN. [Concomitant]
     Active Substance: BACLOFEN
  5. LOVASTATIN. [Concomitant]
     Active Substance: LOVASTATIN
  6. AMLODIPINE [Concomitant]
     Active Substance: AMLODIPINE BESYLATE
  7. HCTZ [Concomitant]
     Active Substance: HYDROCHLOROTHIAZIDE
  8. BACITRACIN. [Concomitant]
     Active Substance: BACITRACIN
  9. DOXYCYCLINE. [Concomitant]
     Active Substance: DOXYCYCLINE
  10. TIZANIDINE. [Concomitant]
     Active Substance: TIZANIDINE
  11. LISINOPRIL. [Concomitant]
     Active Substance: LISINOPRIL
  12. TIMOLOL. [Concomitant]
     Active Substance: TIMOLOL
  13. PRAVASTATIN. [Concomitant]
     Active Substance: PRAVASTATIN
  14. TRAVATAN Z [Concomitant]
     Active Substance: TRAVOPROST

REACTIONS (1)
  - Diarrhoea [Unknown]
